FAERS Safety Report 6369373-7 (Version None)
Quarter: 2009Q3

REPORT INFORMATION
  Report Type: 
  Country: None (occurrence: None)
  Receive Date: 20090917
  Receipt Date: 20090903
  Transmission Date: 20100115
  Serious: Yes (Death, Hospitalization)
  Sender: FDA-Public Use
  Company Number: 2009EN000243

PATIENT
  Age: 71 Year
  Sex: Female
  Weight: 56 kg

DRUGS (22)
  1. ONCASPAR [Suspect]
     Indication: MULTIPLE MYELOMA
     Dosage: 4250 IU; QOW; IV
     Route: 042
     Dates: start: 20090720, end: 20090817
  2. ONCASPAR [Suspect]
  3. DOXIL [Suspect]
     Indication: MULTIPLE MYELOMA
     Dosage: 34 MG; QOW; IV
     Route: 042
     Dates: start: 20090720, end: 20090817
  4. DECADRON [Suspect]
     Indication: MULTIPLE MYELOMA
     Dosage: 20 MG; QW; PO
     Route: 048
     Dates: start: 20090720, end: 20090817
  5. FLUCONAZOLE [Concomitant]
  6. MAGIC SWIZZLE [Concomitant]
  7. ATENOLOL [Concomitant]
  8. CIPROFLAXACIN [Concomitant]
  9. LEVAQUIN [Concomitant]
  10. DOCUSATE [Concomitant]
  11. FEXOFENADINE [Concomitant]
  12. GABAPENTIN [Concomitant]
  13. LORAZEPAM [Concomitant]
  14. MAGNESIUM HYDROXIDE TAB [Concomitant]
  15. METFORMIN HCL [Concomitant]
  16. M.V.I. [Concomitant]
  17. NYSTATIN [Concomitant]
  18. LOVAZA [Concomitant]
  19. PANTOPRAZOLE SODIUM [Concomitant]
  20. PROCHLORPERAZINE [Concomitant]
  21. SENNA [Concomitant]
  22. SILVER SULFADIAZINE [Concomitant]

REACTIONS (17)
  - ABDOMINAL PAIN UPPER [None]
  - ASTHENIA [None]
  - CHILLS [None]
  - CHOLECYSTITIS [None]
  - DEHYDRATION [None]
  - DISEASE PROGRESSION [None]
  - FAILURE TO THRIVE [None]
  - HYPOPHAGIA [None]
  - MUCOSAL INFLAMMATION [None]
  - MULTIPLE MYELOMA [None]
  - NAUSEA [None]
  - ORAL CANDIDIASIS [None]
  - ORAL HERPES [None]
  - PSEUDOMONAS INFECTION [None]
  - PULMONARY EMBOLISM [None]
  - STOMATITIS [None]
  - UNRESPONSIVE TO STIMULI [None]
